FAERS Safety Report 4363881-6 (Version None)
Quarter: 2004Q2

REPORT INFORMATION
  Report Type: 
  Country: None (occurrence: None)
  Receive Date: 20040520
  Receipt Date: 20040520
  Transmission Date: 20050107
  Serious: Yes (Other)
  Sender: FDA-Public Use
  Company Number: None

PATIENT
  Sex: Female
  Weight: 61.2356 kg

DRUGS (1)
  1. TRI-NESSA [Suspect]
     Indication: CONTRACEPTION
     Dosage: 1 TAB PO DAILY (IS A MONTHLY MEDICATION)(ICCURED W/IN 1-2 DAYS
     Route: 048

REACTIONS (2)
  - PHARMACEUTICAL PRODUCT COMPLAINT [None]
  - RASH [None]
